FAERS Safety Report 15579512 (Version 13)
Quarter: 2019Q2

REPORT INFORMATION
  Report Type: Report from Study
  Country: CO (occurrence: CO)
  Receive Date: 20181102
  Receipt Date: 20190418
  Transmission Date: 20190711
  Serious: Yes (Hospitalization, Other)
  Sender: FDA-Public Use
  Company Number: CO-JNJFOC-20181037191

PATIENT
  Age: 51 Year
  Sex: Male
  Weight: 81 kg

DRUGS (4)
  1. DARZALEX [Suspect]
     Active Substance: DARATUMUMAB
     Indication: PLASMA CELL MYELOMA
     Route: 042
     Dates: start: 20181020, end: 20181221
  2. DARZALEX [Suspect]
     Active Substance: DARATUMUMAB
     Indication: PLASMA CELL MYELOMA
     Route: 042
     Dates: start: 20190128, end: 20190327
  3. BORTEZOMIB. [Concomitant]
     Active Substance: BORTEZOMIB
     Indication: PLASMA CELL MYELOMA
     Route: 058
     Dates: start: 20181020, end: 20190327
  4. DEXAMETHASONE. [Concomitant]
     Active Substance: DEXAMETHASONE
     Indication: PLASMA CELL MYELOMA
     Route: 042
     Dates: start: 20181020

REACTIONS (25)
  - Anaemia [Not Recovered/Not Resolved]
  - Neutropenia [Not Recovered/Not Resolved]
  - Gastroenteritis [Recovering/Resolving]
  - Blood calcium increased [Not Recovered/Not Resolved]
  - Pain [Not Recovered/Not Resolved]
  - Arthralgia [Not Recovered/Not Resolved]
  - Nausea [Not Recovered/Not Resolved]
  - Spinal fracture [Not Recovered/Not Resolved]
  - Blood electrolytes decreased [Recovering/Resolving]
  - Cough [Not Recovered/Not Resolved]
  - Fatigue [Not Recovered/Not Resolved]
  - Somnolence [Not Recovered/Not Resolved]
  - Disorientation [Recovering/Resolving]
  - Monoclonal immunoglobulin present [Not Recovered/Not Resolved]
  - Influenza like illness [Recovering/Resolving]
  - White blood cell count decreased [Not Recovered/Not Resolved]
  - Blood creatinine increased [Not Recovered/Not Resolved]
  - Pain [Recovering/Resolving]
  - Neuropathy peripheral [Recovering/Resolving]
  - Platelet count decreased [Not Recovered/Not Resolved]
  - Diarrhoea [Recovering/Resolving]
  - Disease progression [Not Recovered/Not Resolved]
  - Drug ineffective [Unknown]
  - Arthralgia [Recovering/Resolving]
  - Lethargy [Recovering/Resolving]

NARRATIVE: CASE EVENT DATE: 20181023
